FAERS Safety Report 15937803 (Version 1)
Quarter: 2019Q1

REPORT INFORMATION
  Report Type: Report from Study
  Country: US (occurrence: US)
  Receive Date: 20190208
  Receipt Date: 20190208
  Transmission Date: 20190417
  Serious: No
  Sender: FDA-Public Use
  Company Number: US-AEGERION PHARMACEUTICAL, INC-AEGR004121

PATIENT
  Age: 61 Year
  Sex: Female
  Weight: 61.22 kg

DRUGS (1)
  1. MYALEPT [Suspect]
     Active Substance: METRELEPTIN
     Indication: CONGENITAL GENERALISED LIPODYSTROPHY
     Dosage: UNK
     Route: 058

REACTIONS (4)
  - Nasopharyngitis [Recovering/Resolving]
  - Respiratory tract infection viral [Recovering/Resolving]
  - Cough [Recovering/Resolving]
  - Respiratory tract infection bacterial [Recovering/Resolving]

NARRATIVE: CASE EVENT DATE: 201901
